FAERS Safety Report 21488673 (Version 1)
Quarter: 2022Q4

REPORT INFORMATION
  Report Type: Spontaneous
  Country: US (occurrence: None)
  Receive Date: 20221020
  Receipt Date: 20221020
  Transmission Date: 20230113
  Serious: Yes (Hospitalization)
  Sender: FDA-Public Use
  Company Number: None

PATIENT
  Age: 64 Year
  Sex: Female
  Weight: 62.87 kg

DRUGS (21)
  1. CAPECITABINE [Suspect]
     Active Substance: CAPECITABINE
     Indication: Breast cancer female
     Dosage: FREQUENCY : TWICE A DAY;?
     Route: 048
  2. ATORVASTATIN [Concomitant]
     Active Substance: ATORVASTATIN
  3. BACLOFEN [Concomitant]
     Active Substance: BACLOFEN
  4. CITALOPRAM [Concomitant]
     Active Substance: CITALOPRAM HYDROBROMIDE
  5. VITAMIN C W/ROSE HIPS [Concomitant]
  6. HAIR SKIN AND NAILS [Concomitant]
  7. KRILL OIL [Concomitant]
     Active Substance: DIETARY SUPPLEMENT\KRILL OIL
  8. LOSARTAN [Concomitant]
     Active Substance: LOSARTAN
  9. MAGNESIUM GLUCONATE [Concomitant]
     Active Substance: MAGNESIUM GLUCONATE
  10. MAXIMUM RED KRILL [Concomitant]
  11. MONTELUKAST [Concomitant]
     Active Substance: MONTELUKAST SODIUM
  12. VITAMINS [Concomitant]
     Active Substance: VITAMINS
  13. PERCOCET [Concomitant]
     Active Substance: ACETAMINOPHEN\OXYCODONE HYDROCHLORIDE
  14. PROBIOTICS NOS [Concomitant]
     Active Substance: PROBIOTICS NOS
  15. PROPRANOLOL [Concomitant]
     Active Substance: PROPRANOLOL HYDROCHLORIDE
  16. GLUCOSAMINE + VITAMIN D3 [Concomitant]
  17. TAVABOROLE [Concomitant]
     Active Substance: TAVABOROLE
  18. TRELEGY ELLIPTA [Concomitant]
     Active Substance: FLUTICASONE FUROATE\UMECLIDINIUM BROMIDE\VILANTEROL TRIFENATATE
  19. VITAMIN B12 [Concomitant]
     Active Substance: CYANOCOBALAMIN
  20. XANAX [Concomitant]
     Active Substance: ALPRAZOLAM
  21. ZINC + VITAMIN C MOUTH/THROAT LOZENGE [Concomitant]

REACTIONS (3)
  - Illness [None]
  - Gait disturbance [None]
  - Therapy cessation [None]
